FAERS Safety Report 12175271 (Version 1)
Quarter: 2016Q1

REPORT INFORMATION
  Report Type: Spontaneous
  Country: US (occurrence: US)
  Receive Date: 20160314
  Receipt Date: 20160314
  Transmission Date: 20160526
  Serious: No
  Sender: FDA-Public Use
  Company Number: US-TEVA-616001USA

PATIENT
  Sex: Female
  Weight: 65.83 kg

DRUGS (1)
  1. MIMVEY LO [Suspect]
     Active Substance: ESTRADIOL\NORETHINDRONE ACETATE
     Indication: VULVOVAGINAL DRYNESS
     Dosage: 0.5 MG/0.1MG
     Route: 048

REACTIONS (2)
  - Alopecia [Unknown]
  - Therapeutic response unexpected [Unknown]
